FAERS Safety Report 5575755-3 (Version None)
Quarter: 2007Q4

REPORT INFORMATION
  Report Type: 
  Country: None (occurrence: None)
  Receive Date: 20071130
  Receipt Date: 20070731
  Transmission Date: 20080405
  Serious: No
  Sender: FDA-Public Use
  Company Number: US200707007218

PATIENT
  Age: 48 Year
  Sex: Female
  Weight: 90.2 kg

DRUGS (4)
  1. BYETTA [Suspect]
     Indication: WEIGHT CONTROL
     Dosage: 5 UG, 2/D, SUBCUTANEOUS ; 5 UG, 2/D, SUBCUTANEOUS
     Route: 058
     Dates: start: 20061101, end: 20070201
  2. BYETTA [Suspect]
     Indication: WEIGHT CONTROL
     Dosage: 5 UG, 2/D, SUBCUTANEOUS ; 5 UG, 2/D, SUBCUTANEOUS
     Route: 058
     Dates: start: 20070401, end: 20070717
  3. GLUCOPHAGE [Concomitant]
  4. GLYBURIDE [Concomitant]

REACTIONS (9)
  - BLOOD GLUCOSE INCREASED [None]
  - CHEILITIS [None]
  - HALLUCINATION [None]
  - INJECTION SITE HAEMORRHAGE [None]
  - INJECTION SITE PRURITUS [None]
  - INJECTION SITE VESICLES [None]
  - LIP SWELLING [None]
  - SKIN EXFOLIATION [None]
  - WEIGHT INCREASED [None]
